FAERS Safety Report 18242066 (Version 1)
Quarter: 2020Q3

REPORT INFORMATION
  Report Type: Spontaneous
  Country: CH (occurrence: CH)
  Receive Date: 20200908
  Receipt Date: 20200908
  Transmission Date: 20201103
  Serious: Yes (Hospitalization)
  Sender: FDA-Public Use
  Company Number: CH-TEVA-2020-CH-1825984

PATIENT
  Age: 86 Year
  Sex: Female

DRUGS (9)
  1. SEROQUEL [Suspect]
     Active Substance: QUETIAPINE FUMARATE
     Dates: end: 20200725
  2. PANTOZOL [Concomitant]
     Active Substance: PANTOPRAZOLE SODIUM
  3. SEROQUEL [Suspect]
     Active Substance: QUETIAPINE FUMARATE
     Dates: start: 20200725, end: 20200804
  4. DAFALGAN [Concomitant]
     Active Substance: ACETAMINOPHEN
  5. COMILORID [Suspect]
     Active Substance: HYDROCHLOROTHIAZIDE
     Dates: end: 20200725
  6. PRAMIPEXOL [Suspect]
     Active Substance: PRAMIPEXOLE
     Dates: end: 20200725
  7. METOLAZON [Suspect]
     Active Substance: METOLAZONE
     Dates: end: 20200725
  8. XARELTO [Concomitant]
     Active Substance: RIVAROXABAN
  9. BILOL [Concomitant]
     Active Substance: BISOPROLOL

REACTIONS (2)
  - Hyponatraemic coma [Recovered/Resolved]
  - Inappropriate antidiuretic hormone secretion [Recovered/Resolved]

NARRATIVE: CASE EVENT DATE: 20200725
